FAERS Safety Report 17540964 (Version 1)
Quarter: 2020Q1

REPORT INFORMATION
  Report Type: Spontaneous
  Country: RU (occurrence: RU)
  Receive Date: 20200313
  Receipt Date: 20200313
  Transmission Date: 20200409
  Serious: Yes (Other)
  Sender: FDA-Public Use
  Company Number: RU-BAYER-2020-041278

PATIENT
  Sex: Female

DRUGS (5)
  1. VISANNE [Suspect]
     Active Substance: DIENOGEST
     Indication: PREMATURE MENOPAUSE
  2. YARINA [Suspect]
     Active Substance: DROSPIRENONE\ETHINYL ESTRADIOL
     Route: 048
  3. CYCLOFERON [Concomitant]
     Active Substance: MEGLUMINE
  4. VISANNE [Suspect]
     Active Substance: DIENOGEST
     Indication: UTERINE HAEMORRHAGE
     Dosage: UNK
     Route: 048
     Dates: start: 201304, end: 201310
  5. CALCIUM [Concomitant]
     Active Substance: CALCIUM

REACTIONS (5)
  - Inappropriate schedule of product administration [None]
  - Gardnerella infection [None]
  - Ureaplasma infection [None]
  - Off label use [None]
  - Drug ineffective for unapproved indication [None]

NARRATIVE: CASE EVENT DATE: 201305
